FAERS Safety Report 10077630 (Version 1)
Quarter: 2014Q2

REPORT INFORMATION
  Report Type: Spontaneous
  Country: US (occurrence: US)
  Receive Date: 20140414
  Receipt Date: 20140414
  Transmission Date: 20141212
  Serious: No
  Sender: FDA-Public Use
  Company Number: US-BANPHARM-20142029

PATIENT
  Age: 51 Year
  Sex: Female
  Weight: 81.65 kg

DRUGS (3)
  1. ALEVE LIQUID GELS 220 MG [Suspect]
     Indication: HEADACHE
     Dosage: 1 DF, PRN,
     Route: 048
  2. MIDOL ANY TYPE [Suspect]
     Indication: DYSMENORRHOEA
     Dosage: 1 DF, PRN,
     Route: 048
  3. MIDOL [Suspect]
     Indication: DYSMENORRHOEA
     Dosage: 1 DF, PRN,

REACTIONS (1)
  - Drug ineffective [Unknown]
